FAERS Safety Report 11176527 (Version 2)
Quarter: 2015Q3

REPORT INFORMATION
  Report Type: Spontaneous
  Country: US (occurrence: US)
  Receive Date: 20150610
  Receipt Date: 20150709
  Transmission Date: 20151125
  Serious: Yes (Other)
  Sender: FDA-Public Use
  Company Number: US-ASTRAZENECA-2015SE53713

PATIENT
  Sex: Female
  Weight: 46.3 kg

DRUGS (3)
  1. SYMBICORT [Suspect]
     Active Substance: BUDESONIDE\FORMOTEROL FUMARATE DIHYDRATE
     Indication: WHEEZING
     Dosage: 160/4.5 MCG 120 INHALATIONS TWO PUFFS TWO TIMES A DAY
     Route: 055
     Dates: start: 20150527
  2. UNKNOWN [Concomitant]
     Active Substance: UNSPECIFIED INGREDIENT
     Indication: INHALATION THERAPY
     Dosage: PRN
  3. SPIRVIA [Concomitant]
     Indication: CHRONIC OBSTRUCTIVE PULMONARY DISEASE

REACTIONS (9)
  - Palpitations [Unknown]
  - Feeling jittery [Unknown]
  - Product use issue [Unknown]
  - Dysphonia [Unknown]
  - Oropharyngeal pain [Unknown]
  - Throat tightness [Unknown]
  - Off label use [Unknown]
  - Pharyngitis [Unknown]
  - Tremor [Unknown]
